FAERS Safety Report 7493655-9 (Version None)
Quarter: 2011Q2

REPORT INFORMATION
  Report Type: 
  Country: None (occurrence: None)
  Receive Date: 20110519
  Receipt Date: 20110519
  Transmission Date: 20111010
  Serious: Yes (Hospitalization)
  Sender: FDA-Public Use
  Company Number: None

PATIENT
  Age: 75 Year
  Sex: Male
  Weight: 87.136 kg

DRUGS (6)
  1. ABRAXANE [Suspect]
     Indication: TRANSITIONAL CELL CARCINOMA
     Dosage: ABI-007-462 MG D1 OF EACH CYCLE IV
     Route: 042
     Dates: start: 20110110
  2. ABRAXANE [Suspect]
     Indication: TRANSITIONAL CELL CARCINOMA
     Dosage: ABI-007-462 MG D1 OF EACH CYCLE IV
     Route: 042
     Dates: start: 20110131
  3. CARBOPLATIN [Suspect]
     Indication: TRANSITIONAL CELL CARCINOMA
     Dosage: CARBOPLATIN-595 MG DAY 1 OF EACH CYCLE IV
     Route: 042
     Dates: start: 20110110
  4. CARBOPLATIN [Suspect]
     Indication: TRANSITIONAL CELL CARCINOMA
     Dosage: CARBOPLATIN-595 MG DAY 1 OF EACH CYCLE IV
     Route: 042
     Dates: start: 20110131
  5. GEMCITABINE [Suspect]
     Indication: TRANSITIONAL CELL CARCINOMA
     Dosage: 1680MG, DAY 1 AND 8 OF EACH CYCLE IV
     Route: 042
     Dates: start: 20110110
  6. GEMCITABINE [Suspect]
     Indication: TRANSITIONAL CELL CARCINOMA
     Dosage: 1680MG, DAY 1 AND 8 OF EACH CYCLE IV
     Route: 042
     Dates: start: 20110131

REACTIONS (1)
  - SYNCOPE [None]
